FAERS Safety Report 15240691 (Version 1)
Quarter: 2018Q3

REPORT INFORMATION
  Report Type: Spontaneous
  Country: US (occurrence: US)
  Receive Date: 20180710
  Receipt Date: 20180710
  Transmission Date: 20181010
  Serious: Yes (Death)
  Sender: FDA-Public Use
  Company Number: None

PATIENT
  Age: 69 Year
  Sex: Female

DRUGS (14)
  1. GLIPIZIDE. [Concomitant]
     Active Substance: GLIPIZIDE
  2. PRFEDNISONE [Concomitant]
  3. MIRTAZAPINE. [Concomitant]
     Active Substance: MIRTAZAPINE
  4. GLYBURIDE. [Concomitant]
     Active Substance: GLYBURIDE
  5. ESCITALOPRAM [Concomitant]
     Active Substance: ESCITALOPRAM OXALATE
  6. FAMOTIDINE. [Concomitant]
     Active Substance: FAMOTIDINE
  7. FUROSEMIDE. [Concomitant]
     Active Substance: FUROSEMIDE
  8. PANTOPRAZOLE [Concomitant]
     Active Substance: PANTOPRAZOLE
  9. ADCIRCA [Suspect]
     Active Substance: TADALAFIL
     Indication: PULMONARY ARTERIAL HYPERTENSION
     Route: 048
     Dates: start: 201805, end: 201806
  10. MYCOPHENOLAT [Concomitant]
     Active Substance: MYCOPHENOLATE MOFETIL
  11. CELLCEPT [Concomitant]
     Active Substance: MYCOPHENOLATE MOFETIL\MYCOPHENOLATE MOFETIL HYDROCHLORIDE
  12. ACYCLOVIR. [Concomitant]
     Active Substance: ACYCLOVIR
  13. GABAPENTIN. [Concomitant]
     Active Substance: GABAPENTIN
  14. SMZ/TMP [Concomitant]
     Active Substance: SULFAMETHOXAZOLE\TRIMETHOPRIM

REACTIONS (1)
  - Death [None]

NARRATIVE: CASE EVENT DATE: 20180610
